FAERS Safety Report 16709799 (Version 1)
Quarter: 2019Q4

REPORT INFORMATION
  Report Type: Spontaneous
  Country: US (occurrence: US)
  Receive Date: 20190815
  Receipt Date: 20190815
  Transmission Date: 20200122
  Serious: Yes (Disabling)
  Sender: FDA-Public Use
  Company Number: None

PATIENT
  Age: 54 Year
  Sex: Female
  Weight: 83.25 kg

DRUGS (5)
  1. SYNTHOID 88 UG/DAY [Concomitant]
  2. LOTEMAX [Suspect]
     Active Substance: LOTEPREDNOL ETABONATE
     Indication: CATARACT OPERATION
     Dosage: ?          QUANTITY:1 DROP(S);?
     Route: 047
     Dates: start: 20190528, end: 20190703
  3. VIT D3 1000 IU [Concomitant]
  4. CALTRATE 600 MG 2X/DAY [Concomitant]
  5. CRANBERRY 4200 MG 1X/DAY [Concomitant]

REACTIONS (4)
  - Vision blurred [None]
  - Diplopia [None]
  - Deafness [None]
  - Tinnitus [None]

NARRATIVE: CASE EVENT DATE: 20190606
